FAERS Safety Report 9641827 (Version 1)
Quarter: 2013Q4

REPORT INFORMATION
  Report Type: Spontaneous
  Country: JP (occurrence: JP)
  Receive Date: 20131023
  Receipt Date: 20131023
  Transmission Date: 20140711
  Serious: Yes (Hospitalization)
  Sender: FDA-Public Use
  Company Number: JP-VERTEX PHARMACEUTICALS INC-2013-010603

PATIENT
  Age: 50 Year
  Sex: Male

DRUGS (8)
  1. TELAVIC [Suspect]
     Indication: HEPATITIS C
     Dosage: 2250 MG, QD
     Route: 048
     Dates: start: 20130314, end: 20130316
  2. TELAVIC [Suspect]
     Dosage: 750 MG, QD
     Route: 048
     Dates: start: 20030117, end: 20130317
  3. PEGINTERFERON ALFA-2B [Suspect]
     Indication: HEPATITIS C
     Dosage: 100 ?G, QW
     Route: 058
     Dates: start: 20130314
  4. REBETOL [Suspect]
     Indication: HEPATITIS C
     Dosage: 800 MG, QD
     Dates: start: 20130314, end: 20130316
  5. REBETOL [Suspect]
     Dosage: 400 MG, QD
     Route: 048
     Dates: start: 20130317
  6. SOLYUGEN [Concomitant]
     Dosage: 1500 ML, QD
     Route: 041
     Dates: start: 20130315
  7. ACETAMINOPHEN [Concomitant]
     Dosage: 400 MG, PRN
     Dates: start: 20130315
  8. OLOPATADINE [Concomitant]
     Dosage: 10 MG, QD
     Dates: start: 20130316

REACTIONS (2)
  - Rash [Recovered/Resolved]
  - Drug eruption [Recovered/Resolved]
